FAERS Safety Report 7821096-0 (Version None)
Quarter: 2011Q4

REPORT INFORMATION
  Report Type: 
  Country: None (occurrence: None)
  Receive Date: 20111018
  Receipt Date: 20111014
  Transmission Date: 20120403
  Serious: No
  Sender: FDA-Public Use
  Company Number: US-PFIZER INC-2011247028

PATIENT
  Sex: Male
  Weight: 81.633 kg

DRUGS (3)
  1. PLAVIX [Concomitant]
     Indication: CARDIAC DISORDER
     Dosage: 40 MG, 2X/DAY
  2. PROTONIX [Suspect]
     Indication: GASTROOESOPHAGEAL REFLUX DISEASE
     Dosage: 40 MG, 2X/DAY
     Dates: start: 20090101
  3. ACETYLSALICYLIC ACID [Concomitant]
     Dosage: 325 MG,DAILY

REACTIONS (1)
  - DRUG EFFECT DECREASED [None]
